FAERS Safety Report 21092273 (Version 15)
Quarter: 2024Q2

REPORT INFORMATION
  Report Type: Spontaneous
  Country: CA (occurrence: CA)
  Receive Date: 20220718
  Receipt Date: 20240619
  Transmission Date: 20240716
  Serious: Yes (Hospitalization, Other)
  Sender: FDA-Public Use
  Company Number: CA-CELLTRION INC.-2021CA011059

PATIENT

DRUGS (29)
  1. INFLECTRA [Suspect]
     Active Substance: INFLIXIMAB-DYYB
     Indication: Crohn^s disease
     Dosage: 500 MG WEEKS 0, 2,6 THEN EVERY 8 WEEKS
     Route: 042
     Dates: start: 20210617
  2. INFLECTRA [Suspect]
     Active Substance: INFLIXIMAB-DYYB
     Dosage: 500 MG WEEKS 0, 2,6 THEN EVERY 8 WEEKS
     Route: 042
     Dates: start: 20210617, end: 20220707
  3. INFLECTRA [Suspect]
     Active Substance: INFLIXIMAB-DYYB
     Dosage: 500 MG WEEKS 0, 2,6 THEN EVERY 8 WEEKS
     Route: 042
     Dates: start: 20210702
  4. INFLECTRA [Suspect]
     Active Substance: INFLIXIMAB-DYYB
     Dosage: 500 MG WEEKS 0, 2,6 THEN EVERY 8 WEEKS
     Route: 042
     Dates: start: 20210729, end: 20210729
  5. INFLECTRA [Suspect]
     Active Substance: INFLIXIMAB-DYYB
     Dosage: 500 MG WEEKS 0, 2,6 THEN EVERY 8 WEEKS
     Route: 042
     Dates: start: 20210922
  6. INFLECTRA [Suspect]
     Active Substance: INFLIXIMAB-DYYB
     Dosage: 500 MG WEEKS 0, 2,6 THEN EVERY 8 WEEKS
     Route: 042
     Dates: start: 20211119
  7. INFLECTRA [Suspect]
     Active Substance: INFLIXIMAB-DYYB
     Dosage: 500 MG WEEKS 0, 2,6 THEN EVERY 8 WEEKS
     Route: 042
     Dates: start: 20220115
  8. INFLECTRA [Suspect]
     Active Substance: INFLIXIMAB-DYYB
     Dosage: 500 MG WEEKS 0, 2,6 THEN EVERY 8 WEEKS
     Route: 042
     Dates: start: 20220506
  9. INFLECTRA [Suspect]
     Active Substance: INFLIXIMAB-DYYB
     Dosage: 500 MG WEEKS 0, 2,6 THEN EVERY 8 WEEKS
     Route: 042
     Dates: start: 20220707
  10. INFLECTRA [Suspect]
     Active Substance: INFLIXIMAB-DYYB
     Dosage: 600 MG, EVERY 8 WEEK
     Route: 042
     Dates: start: 20220901
  11. INFLECTRA [Suspect]
     Active Substance: INFLIXIMAB-DYYB
     Dosage: 500 MG, EVERY 8 WEEK (SUPPOSED TO RECEIVE 600MG)
     Route: 042
     Dates: start: 20221101
  12. INFLECTRA [Suspect]
     Active Substance: INFLIXIMAB-DYYB
     Dosage: 600 MG, EVERY 8 WEEKS
     Route: 042
     Dates: start: 20230418
  13. INFLECTRA [Suspect]
     Active Substance: INFLIXIMAB-DYYB
     Dosage: 600 MG, EVERY 8 WEEKS (10 WEEKS 1 DAY)
     Route: 042
     Dates: start: 20230628
  14. INFLECTRA [Suspect]
     Active Substance: INFLIXIMAB-DYYB
     Dosage: 600 MG, EVERY 8 WEEKS
     Route: 042
     Dates: start: 20230822
  15. INFLECTRA [Suspect]
     Active Substance: INFLIXIMAB-DYYB
     Dosage: 600 MG, EVERY 8 WEEKS
     Route: 042
     Dates: start: 20231019
  16. INFLECTRA [Suspect]
     Active Substance: INFLIXIMAB-DYYB
     Dosage: 600 MG, EVERY 8 WEEKS
     Route: 042
     Dates: start: 20231214
  17. INFLECTRA [Suspect]
     Active Substance: INFLIXIMAB-DYYB
     Dosage: 600 MG, EVERY 8 WEEKS
     Route: 042
     Dates: start: 20231214
  18. INFLECTRA [Suspect]
     Active Substance: INFLIXIMAB-DYYB
     Dosage: 600 MG, EVERY 8 WEEK
     Route: 042
     Dates: start: 20240206
  19. INFLECTRA [Suspect]
     Active Substance: INFLIXIMAB-DYYB
     Dosage: 600 MG, EVERY 8 WEEKS
     Route: 042
     Dates: start: 20240206
  20. INFLECTRA [Suspect]
     Active Substance: INFLIXIMAB-DYYB
     Dosage: 600 MG, EVERY 8 WEEKS (600 MG, AFTER 9 WEEKS AND 5 DAYS)
     Route: 042
     Dates: start: 20240220
  21. INFLECTRA [Suspect]
     Active Substance: INFLIXIMAB-DYYB
     Dosage: 600 MG, EVERY 8 WEEKS (600 MG, AFTER 9 WEEKS AND 5 DAYS)
     Route: 042
     Dates: start: 20240220
  22. INFLECTRA [Suspect]
     Active Substance: INFLIXIMAB-DYYB
     Dosage: 600 MG, EVERY 8 WEEKS (600 MG, AFTER 9 WEEKS AND 5 DAYS)
     Route: 042
     Dates: start: 20240220
  23. INFLECTRA [Suspect]
     Active Substance: INFLIXIMAB-DYYB
     Dosage: 600 MG, EVERY 8 WEEKS (600 MG, AFTER 9 WEEKS AND 5 DAYS)
     Route: 042
     Dates: start: 20240220
  24. INFLECTRA [Suspect]
     Active Substance: INFLIXIMAB-DYYB
     Dosage: 600 MG, EVERY 8 WEEKS (600 MG, AFTER 9 WEEKS AND 5 DAYS)
     Route: 042
     Dates: start: 20240220
  25. INFLECTRA [Suspect]
     Active Substance: INFLIXIMAB-DYYB
     Dosage: 600 MG, EVERY 8 WEEKS (600 MG, AFTER 9 WEEKS AND 5 DAYS)
     Route: 042
     Dates: start: 20240220
  26. INFLECTRA [Suspect]
     Active Substance: INFLIXIMAB-DYYB
     Dosage: 600 MG, 10 WEEKS AND 2 DAYS
     Route: 042
     Dates: start: 20240502
  27. INFLECTRA [Suspect]
     Active Substance: INFLIXIMAB-DYYB
     Dosage: 600 MG, 5 WEEKS AND 5 DAYS (EVERY 8 WEEK)
     Route: 042
     Dates: start: 20240611
  28. AZATHIOPRINE [Concomitant]
     Active Substance: AZATHIOPRINE
     Dosage: UNK, HOLD
  29. PREDNISONE [Concomitant]
     Active Substance: PREDNISONE
     Dosage: 40 MG

REACTIONS (23)
  - Limb operation [Recovering/Resolving]
  - Limb operation [Recovering/Resolving]
  - Impaired healing [Not Recovered/Not Resolved]
  - Complicated fracture [Recovering/Resolving]
  - Fall [Recovering/Resolving]
  - Hand fracture [Recovering/Resolving]
  - Ulna fracture [Recovering/Resolving]
  - Mobility decreased [Recovering/Resolving]
  - Weight increased [Unknown]
  - Abdominal pain upper [Not Recovered/Not Resolved]
  - Nausea [Recovered/Resolved]
  - Heart rate decreased [Unknown]
  - Condition aggravated [Recovered/Resolved]
  - Fatigue [Not Recovered/Not Resolved]
  - Peripheral swelling [Not Recovered/Not Resolved]
  - Pain in extremity [Not Recovered/Not Resolved]
  - Weight decreased [Unknown]
  - Illness [Unknown]
  - Drug level below therapeutic [Unknown]
  - Off label use [Unknown]
  - Intentional product use issue [Unknown]
  - Inappropriate schedule of product administration [Unknown]
  - Incorrect dose administered [Unknown]

NARRATIVE: CASE EVENT DATE: 20210701
